FAERS Safety Report 18435358 (Version 1)
Quarter: 2020Q4

REPORT INFORMATION
  Report Type: Spontaneous
  Country: US (occurrence: US)
  Receive Date: 20201027
  Receipt Date: 20201027
  Transmission Date: 20210114
  Serious: Yes (Hospitalization)
  Sender: FDA-Public Use
  Company Number: None

PATIENT
  Age: 64 Year
  Sex: Male
  Weight: 93.8 kg

DRUGS (1)
  1. METFORMIN EXTENDED RELEASE [Suspect]
     Active Substance: METFORMIN HYDROCHLORIDE
     Indication: TYPE 2 DIABETES MELLITUS
     Dates: start: 20180611, end: 20200419

REACTIONS (3)
  - Epistaxis [None]
  - Lactic acidosis [None]
  - Blood glucose increased [None]

NARRATIVE: CASE EVENT DATE: 20200418
